FAERS Safety Report 24139963 (Version 2)
Quarter: 2024Q3

REPORT INFORMATION
  Report Type: Spontaneous
  Country: US (occurrence: US)
  Receive Date: 20240726
  Receipt Date: 20240729
  Transmission Date: 20241016
  Serious: No
  Sender: NOVARTIS
  Company Number: US-002147023-NVSC2024US147593

PATIENT
  Age: 25 Year
  Sex: Male

DRUGS (1)
  1. VALSARTAN [Suspect]
     Active Substance: VALSARTAN
     Indication: Product used for unknown indication
     Dosage: 80 MG (FOR ABOUT 26 WEEKS)
     Route: 065

REACTIONS (7)
  - Blood pressure increased [Unknown]
  - Eating disorder [Unknown]
  - Weight increased [Unknown]
  - Chest discomfort [Unknown]
  - Musculoskeletal discomfort [Unknown]
  - Anxiety [Unknown]
  - Gastrooesophageal reflux disease [Unknown]
